FAERS Safety Report 5112486-8 (Version None)
Quarter: 2006Q3

REPORT INFORMATION
  Report Type: 
  Country: None (occurrence: None)
  Receive Date: 20060922
  Receipt Date: 20060601
  Transmission Date: 20061208
  Serious: Yes (Other)
  Sender: FDA-Public Use
  Company Number: 2006UW10560

PATIENT
  Sex: Male

DRUGS (1)
  1. ZOLADEX [Suspect]
     Indication: PROSTATE CANCER
     Route: 058

REACTIONS (4)
  - DRUG ADMINISTRATION ERROR [None]
  - MEDICATION ERROR [None]
  - URINARY INCONTINENCE [None]
  - UROSTOMY COMPLICATION [None]
